FAERS Safety Report 7484390-1 (Version None)
Quarter: 2011Q2

REPORT INFORMATION
  Report Type: 
  Country: None (occurrence: None)
  Receive Date: 20110517
  Receipt Date: 20110505
  Transmission Date: 20111010
  Serious: No
  Sender: FDA-Public Use
  Company Number: US-ASTRAZENECA-2010SE11203

PATIENT
  Age: 53 Year
  Sex: Female
  Weight: 58.1 kg

DRUGS (7)
  1. PROZAC [Concomitant]
  2. PLAVIX [Concomitant]
  3. ASPIRIN [Concomitant]
  4. CRESTOR [Suspect]
     Route: 048
     Dates: start: 20100207
  5. METOPROLOL SUCCINATE [Concomitant]
  6. LISINOPRIL [Concomitant]
  7. XANAX [Concomitant]

REACTIONS (4)
  - COUGH [None]
  - TREMOR [None]
  - FEELING ABNORMAL [None]
  - MYALGIA [None]
